FAERS Safety Report 16808284 (Version 33)
Quarter: 2021Q1

REPORT INFORMATION
  Report Type: Report from Study
  Country: None (occurrence: BE)
  Receive Date: 20190916
  Receipt Date: 20210203
  Transmission Date: 20210419
  Serious: Yes (Hospitalization)
  Sender: FDA-Public Use
  Company Number: BE-ABBVIE-19K-013-2922101-00

PATIENT
  Age: 61 Year
  Sex: Male
  Weight: 120 kg

DRUGS (34)
  1. DUODOPA [Suspect]
     Active Substance: CARBIDOPA\LEVODOPA
     Dosage: MD=9ML, CD=4.6ML/HR DURING 16HRS, ED=4ML
     Route: 050
     Dates: start: 20200106, end: 20200314
  2. DUODOPA [Suspect]
     Active Substance: CARBIDOPA\LEVODOPA
     Dosage: MD=7ML, CD=4.7ML/HR DURING 16HRS, ED=4ML, ND=3ML/HR DURING 8HRS
     Route: 050
     Dates: start: 20200422, end: 20200423
  3. DUODOPA [Suspect]
     Active Substance: CARBIDOPA\LEVODOPA
     Dosage: MD=4ML, CD=5.4ML/HR DURING 16HRS, ED=4ML, ND=3.9ML/HR DURING?8HRS
     Route: 050
     Dates: start: 20200625, end: 20200709
  4. DUODOPA [Suspect]
     Active Substance: CARBIDOPA\LEVODOPA
     Dosage: MD=9ML, CD=4.4ML/HR DURING 16HRS, ED=4ML
     Route: 050
     Dates: start: 20191027, end: 20191205
  5. DUODOPA [Suspect]
     Active Substance: CARBIDOPA\LEVODOPA
     Dosage: MD=7ML, CD=5ML/HR DURING 16HRS, ED=4ML, ND=3ML/HR DURING 8HRS
     Route: 050
     Dates: start: 20200423, end: 20200428
  6. DUODOPA [Suspect]
     Active Substance: CARBIDOPA\LEVODOPA
     Dosage: MD=3ML, CD=4ML/HR DURING 16HRS, ED=4ML, ND=0ML/HR DURING 8HRS
     Route: 050
     Dates: start: 20201116, end: 20201125
  7. DUODOPA [Suspect]
     Active Substance: CARBIDOPA\LEVODOPA
     Dosage: MD=3ML, CD=4.5ML/HR DURING 16HRS, ED=4ML
     Route: 050
     Dates: start: 20201125
  8. REQUIP [Concomitant]
     Active Substance: ROPINIROLE HYDROCHLORIDE
     Dates: start: 20200511
  9. DUODOPA [Suspect]
     Active Substance: CARBIDOPA\LEVODOPA
     Indication: PARKINSON^S DISEASE
     Dosage: MD=10ML, CD=4.4ML/HR DURING 16HRS, ED=3.5ML
     Route: 050
     Dates: start: 20190902, end: 20190905
  10. DUODOPA [Suspect]
     Active Substance: CARBIDOPA\LEVODOPA
     Dosage: MD=9ML, CD=4.4ML/HR DURING 16HRS, ED=3.5ML
     Route: 050
     Dates: start: 20190905, end: 20191027
  11. DUODOPA [Suspect]
     Active Substance: CARBIDOPA\LEVODOPA
     Dosage: MD=4ML, CD=5.4ML/HR DURING 16HRS, ED=4ML, ND=4ML/HR DURING 8HRS
     Route: 050
     Dates: start: 20200709, end: 20200807
  12. DUODOPA [Suspect]
     Active Substance: CARBIDOPA\LEVODOPA
     Dosage: MD=9ML, CD=4.6ML/HR DURING 16HRS, ED=4ML
     Route: 050
     Dates: start: 20191205, end: 20191223
  13. DUODOPA [Suspect]
     Active Substance: CARBIDOPA\LEVODOPA
     Dosage: MD=9ML, CD=4.4ML/HR DURING 16HRS, ED=4ML
     Route: 050
     Dates: start: 20191223, end: 20200106
  14. DUODOPA [Suspect]
     Active Substance: CARBIDOPA\LEVODOPA
     Dosage: DOSES CONTINUOUSLY MONITORED AND ADAPTED
     Route: 050
     Dates: start: 20200513, end: 20200604
  15. DUODOPA [Suspect]
     Active Substance: CARBIDOPA\LEVODOPA
     Dosage: MD=4ML, CD=4.8ML/HR DURING 16HRS, ED=4ML, ND=3.8ML/HR DURING?8HRS
     Route: 050
     Dates: start: 20200604, end: 20200619
  16. ZOCOR [Concomitant]
     Active Substance: SIMVASTATIN
     Indication: PRODUCT USED FOR UNKNOWN INDICATION
     Route: 048
  17. REQUIP [Concomitant]
     Active Substance: ROPINIROLE HYDROCHLORIDE
     Indication: PARKINSON^S DISEASE
     Dosage: AFTER START DUODOPA
     Dates: start: 2019, end: 20200510
  18. DUODOPA [Suspect]
     Active Substance: CARBIDOPA\LEVODOPA
     Dosage: MD=9ML, CD=4.8ML/HR DURING 16HRS, ED=4ML
     Route: 050
     Dates: start: 20200314, end: 20200422
  19. DUODOPA [Suspect]
     Active Substance: CARBIDOPA\LEVODOPA
     Dosage: MD=12ML, CD=4.8ML/HR DURING 16HRS, ED=4ML, ND=3.9ML/HR DURING 8HRS
     Route: 050
     Dates: start: 20200511, end: 20200513
  20. DUODOPA [Suspect]
     Active Substance: CARBIDOPA\LEVODOPA
     Dosage: MD=7ML, CD=6ML/HR DURING 16HRS, ED=4ML, ND=4ML/HR DURING 8HRS
     Route: 050
     Dates: start: 20200807, end: 2020
  21. DUODOPA [Suspect]
     Active Substance: CARBIDOPA\LEVODOPA
     Dosage: MD=0ML, CD=4.5ML/HR DURING 16HRS, ED=0ML, ND=0ML/HR DURING 8HRS
     Route: 050
     Dates: start: 20200909, end: 20201005
  22. STALEVO 150 [Concomitant]
     Indication: PARKINSON^S DISEASE
     Dosage: FORM STRENGTH: 150MG/37.5MG/200MG
     Route: 048
  23. SIPRALEXA [Concomitant]
     Active Substance: ESCITALOPRAM OXALATE
     Indication: DEPRESSED MOOD
     Dosage: PRIOR TO START OF DUODOPA THERAPY
     Route: 048
  24. SIPRALEXA [Concomitant]
     Active Substance: ESCITALOPRAM OXALATE
     Dosage: AFTER START OF DUODOPA THERAPY
     Route: 048
  25. DUODOPA [Suspect]
     Active Substance: CARBIDOPA\LEVODOPA
     Dosage: MD=7ML, CD=4.7ML/HR DURING 16HRS, ED=4ML, ND=3.5ML/HR DURING 8HRS
     Route: 050
     Dates: start: 20200428, end: 20200507
  26. DUODOPA [Suspect]
     Active Substance: CARBIDOPA\LEVODOPA
     Dosage: MD=4ML, CD=5.6ML/HR DURING 16HRS, ED=4ML, ND=3.9ML/HR DURING?8HRS
     Route: 050
     Dates: start: 20200619, end: 20200625
  27. DUODOPA [Suspect]
     Active Substance: CARBIDOPA\LEVODOPA
     Dosage: MD=0ML, CD=5ML/HR DURING 16HRS, ED=0ML, ND=0ML/HR DURING 8HRS
     Route: 050
     Dates: start: 2020, end: 2020
  28. DUODOPA [Suspect]
     Active Substance: CARBIDOPA\LEVODOPA
     Dosage: MD=3ML, CD=4.5ML/HR DURING 16HRS, ED=3ML, ND=0ML/HR DURING 8HRS
     Route: 050
     Dates: start: 20201005, end: 20201116
  29. DUODOPA [Suspect]
     Active Substance: CARBIDOPA\LEVODOPA
     Dosage: MD=12ML, CD=4.8ML/HR DURING 16HRS, ED=4ML, ND=3.7ML/HR DURING 8HRS
     Route: 050
     Dates: start: 20200507, end: 20200511
  30. LACTOSE [Suspect]
     Active Substance: LACTOSE
     Indication: PRODUCT USED FOR UNKNOWN INDICATION
     Route: 065
  31. STALEVO 150 [Concomitant]
     Dosage: IF NECESSARY
  32. ASAFLOW [Concomitant]
     Active Substance: ASPIRIN
     Indication: PRODUCT USED FOR UNKNOWN INDICATION
     Route: 048
  33. PROLOPA HBS [Concomitant]
     Active Substance: BENSERAZIDE\LEVODOPA
     Indication: PARKINSON^S DISEASE
     Route: 048
  34. STALEVO 150 [Concomitant]
     Dosage: FORM STRENGTH: 150MG/37.5MG/200MG; UNIT DOSE: 1 TABLET

REACTIONS (41)
  - Medical device site dryness [Unknown]
  - Musculoskeletal stiffness [Not Recovered/Not Resolved]
  - Stress [Unknown]
  - Poor quality sleep [Unknown]
  - Polyneuropathy [Recovering/Resolving]
  - Unevaluable event [Not Recovered/Not Resolved]
  - Condition aggravated [Not Recovered/Not Resolved]
  - Joint range of motion decreased [Not Recovered/Not Resolved]
  - Flatulence [Recovering/Resolving]
  - Insomnia [Recovering/Resolving]
  - Freezing phenomenon [Recovered/Resolved]
  - Stoma site discharge [Recovering/Resolving]
  - Therapeutic product effect incomplete [Recovered/Resolved]
  - Unevaluable event [Unknown]
  - Therapeutic product effect delayed [Unknown]
  - Muscle rigidity [Not Recovered/Not Resolved]
  - Muscle spasms [Recovered/Resolved]
  - Malaise [Not Recovered/Not Resolved]
  - Dyskinesia [Not Recovered/Not Resolved]
  - On and off phenomenon [Not Recovered/Not Resolved]
  - Wrong technique in device usage process [Unknown]
  - Psychiatric symptom [Unknown]
  - Restlessness [Recovering/Resolving]
  - Paraesthesia [Not Recovered/Not Resolved]
  - Fall [Recovered/Resolved]
  - Insomnia [Recovered/Resolved]
  - Hallucination [Unknown]
  - Hypokinesia [Recovering/Resolving]
  - Mobility decreased [Not Recovered/Not Resolved]
  - Peroneal nerve palsy [Unknown]
  - Muscle spasms [Not Recovered/Not Resolved]
  - Unevaluable event [Recovering/Resolving]
  - Nocturnal fear [Not Recovered/Not Resolved]
  - Freezing phenomenon [Unknown]
  - Lactose intolerance [Unknown]
  - Intentional product misuse [Unknown]
  - Mobility decreased [Not Recovered/Not Resolved]
  - Asthenia [Not Recovered/Not Resolved]
  - Tremor [Unknown]
  - Device alarm issue [Recovered/Resolved]
  - Device expulsion [Recovered/Resolved]

NARRATIVE: CASE EVENT DATE: 2019
